FAERS Safety Report 4393945-2 (Version None)
Quarter: 2004Q3

REPORT INFORMATION
  Report Type: 
  Country: None (occurrence: None)
  Receive Date: 20040702
  Receipt Date: 20040615
  Transmission Date: 20050211
  Serious: Yes (Other)
  Sender: FDA-Public Use
  Company Number: 6009220F

PATIENT
  Age: 56 Year
  Sex: Female

DRUGS (5)
  1. NIASPAN [Suspect]
     Indication: HYPERTRIGLYCERIDAEMIA
     Dates: start: 20040521, end: 20040611
  2. GLUCOPHAGE [Concomitant]
  3. DEHYDRO SANOL TRI [Concomitant]
  4. LISINOPRIL [Concomitant]
  5. NITREGAMMA [Concomitant]

REACTIONS (2)
  - GENERALISED ERYTHEMA [None]
  - OEDEMA PERIPHERAL [None]
